FAERS Safety Report 4740985-7 (Version None)
Quarter: 2005Q3

REPORT INFORMATION
  Report Type: 
  Country: None (occurrence: None)
  Receive Date: 20050810
  Receipt Date: 20050526
  Transmission Date: 20060218
  Serious: No
  Sender: FDA-Public Use
  Company Number: US-GLAXOSMITHKLINE-A0560324A

PATIENT
  Age: 58 Year
  Sex: Female
  Weight: 78.6 kg

DRUGS (4)
  1. PAXIL [Suspect]
     Indication: DEPRESSION
     Dosage: 20MG TWICE PER DAY
     Route: 048
     Dates: start: 20050301, end: 20050501
  2. LEVOXYL [Concomitant]
  3. PERCOCET [Concomitant]
     Route: 048
  4. PHENTERMINE [Concomitant]
     Dosage: 37.5MG PER DAY
     Route: 048
     Dates: start: 20050201

REACTIONS (6)
  - CRYING [None]
  - DEPRESSION [None]
  - FATIGUE [None]
  - IRRITABILITY [None]
  - MOOD SWINGS [None]
  - SOMNOLENCE [None]
